FAERS Safety Report 22115323 (Version 1)
Quarter: 2023Q1

REPORT INFORMATION
  Report Type: Spontaneous
  Country: CA (occurrence: None)
  Receive Date: 20230318
  Receipt Date: 20230318
  Transmission Date: 20230417
  Serious: Yes (Disabling)
  Sender: FDA-Public Use
  Company Number: None

PATIENT
  Age: 23 Year
  Sex: Female
  Weight: 72.54 kg

DRUGS (6)
  1. NICODERM CQ [Suspect]
     Active Substance: NICOTINE
     Indication: Ex-tobacco user
     Dosage: OTHER QUANTITY : 1 PATCH(ES);?FREQUENCY : DAILY;?
     Route: 062
     Dates: start: 20230314, end: 20230318
  2. Vyvanse 50mg 1/day [Concomitant]
  3. Feramax 150mg 1/day [Concomitant]
  4. Lolo Birth Control 1/day [Concomitant]
  5. COPPER-CONTAINING INTRAUTERINE DEVICE (IUD) [Concomitant]
     Active Substance: COPPER
  6. Feramax 150mg 1/day [Concomitant]

REACTIONS (9)
  - Nausea [None]
  - Loss of personal independence in daily activities [None]
  - Headache [None]
  - Abnormal dreams [None]
  - Hypopnoea [None]
  - Application site pruritus [None]
  - Application site pain [None]
  - Tinnitus [None]
  - Initial insomnia [None]

NARRATIVE: CASE EVENT DATE: 20230318
